FAERS Safety Report 6143270-4 (Version None)
Quarter: 2009Q2

REPORT INFORMATION
  Report Type: 
  Country: None (occurrence: None)
  Receive Date: 20090403
  Receipt Date: 20090327
  Transmission Date: 20091009
  Serious: Yes (Hospitalization, Congenital Anomaly)
  Sender: FDA-Public Use
  Company Number: A0662881A

PATIENT
  Sex: Female
  Weight: 3.4 kg

DRUGS (8)
  1. PAXIL [Suspect]
     Indication: DEPRESSION
     Dosage: 20MG PER DAY
     Dates: start: 20020121
  2. TERAZOL 1 [Concomitant]
  3. VITAMIN TAB [Concomitant]
  4. CLARITIN [Concomitant]
  5. ZYRTEC [Concomitant]
     Dates: start: 20020101
  6. SUDAFED 12 HOUR [Concomitant]
  7. KEFLEX [Concomitant]
  8. UNKNOWN MEDICATION [Concomitant]

REACTIONS (3)
  - CONGENITAL MEGACOLON [None]
  - DRUG EXPOSURE DURING PREGNANCY [None]
  - MULTIPLE CONGENITAL ABNORMALITIES [None]
